FAERS Safety Report 18213424 (Version 1)
Quarter: 2020Q3

REPORT INFORMATION
  Report Type: Spontaneous
  Country: US (occurrence: US)
  Receive Date: 20200831
  Receipt Date: 20200831
  Transmission Date: 20201103
  Serious: No
  Sender: FDA-Public Use
  Company Number: None

PATIENT
  Age: 58 Year
  Sex: Male
  Weight: 81.45 kg

DRUGS (3)
  1. VERAPAMIL [Concomitant]
     Active Substance: VERAPAMIL HYDROCHLORIDE
  2. PREDNISONE. [Concomitant]
     Active Substance: PREDNISONE
  3. EMGALITY [Suspect]
     Active Substance: GALCANEZUMAB-GNLM
     Indication: CLUSTER HEADACHE
     Dosage: ?          QUANTITY:3 INJECTION(S);OTHER FREQUENCY:MONTHLY;OTHER ROUTE:INJECTION?
     Dates: start: 20200827

REACTIONS (5)
  - Injection site bruising [None]
  - Frequent bowel movements [None]
  - Arthralgia [None]
  - Paraesthesia [None]
  - Abdominal pain upper [None]

NARRATIVE: CASE EVENT DATE: 20200830
